FAERS Safety Report 11050213 (Version 1)
Quarter: 2015Q2

REPORT INFORMATION
  Report Type: Spontaneous
  Country: SE (occurrence: SE)
  Receive Date: 20150421
  Receipt Date: 20150421
  Transmission Date: 20150821
  Serious: Yes (Disabling)
  Sender: FDA-Public Use
  Company Number: SE-009507513-1504SWE017207

PATIENT
  Age: 56 Year
  Sex: Female

DRUGS (3)
  1. ACLASTA [Suspect]
     Active Substance: ZOLEDRONIC ACID
  2. ALENDRONATE SODIUM. [Suspect]
     Active Substance: ALENDRONATE SODIUM
     Route: 048
  3. PROLIA [Suspect]
     Active Substance: DENOSUMAB
     Route: 042

REACTIONS (3)
  - Atrial fibrillation [Not Recovered/Not Resolved]
  - Visual impairment [Not Recovered/Not Resolved]
  - Acetabulum fracture [Not Recovered/Not Resolved]
